FAERS Safety Report 6691920-6 (Version None)
Quarter: 2010Q2

REPORT INFORMATION
  Report Type: 
  Country: None (occurrence: None)
  Receive Date: 20100422
  Receipt Date: 20090810
  Transmission Date: 20101027
  Serious: No
  Sender: FDA-Public Use
  Company Number: US-ASTRAZENECA-2009UW21914

PATIENT
  Sex: Female

DRUGS (3)
  1. TOPROL-XL [Suspect]
     Route: 048
     Dates: start: 20080901
  2. TENEX [Concomitant]
     Indication: HYPERTENSION
  3. BESTATIN [Concomitant]

REACTIONS (4)
  - ALOPECIA [None]
  - DYSPHONIA [None]
  - HEADACHE [None]
  - WEIGHT INCREASED [None]
